FAERS Safety Report 17515597 (Version 1)
Quarter: 2020Q1

REPORT INFORMATION
  Report Type: Spontaneous
  Country: US (occurrence: US)
  Receive Date: 20200309
  Receipt Date: 20200309
  Transmission Date: 20200409
  Serious: No
  Sender: FDA-Public Use
  Company Number: US-MYLANLABS-2020M1021328

PATIENT
  Sex: Female

DRUGS (1)
  1. ALBUTEROL SULFATE INHALATION SOLUTION [Suspect]
     Active Substance: ALBUTEROL SULFATE
     Indication: PRODUCT USED FOR UNKNOWN INDICATION
     Dosage: UNK
     Route: 055
     Dates: start: 20200224, end: 20200224

REACTIONS (9)
  - Dyspnoea [Recovered/Resolved]
  - Nasal pruritus [Recovered/Resolved]
  - Oropharyngeal pain [Recovered/Resolved]
  - Pain [Recovered/Resolved]
  - Throat irritation [Recovered/Resolved]
  - Dysphagia [Recovered/Resolved]
  - Maternal exposure during pregnancy [Unknown]
  - Insomnia [Recovered/Resolved]
  - Pruritus [Recovered/Resolved]

NARRATIVE: CASE EVENT DATE: 20200224
